FAERS Safety Report 18850596 (Version 2)
Quarter: 2021Q1

REPORT INFORMATION
  Report Type: Spontaneous
  Country: FR (occurrence: FR)
  Receive Date: 20210205
  Receipt Date: 20210215
  Transmission Date: 20210420
  Serious: Yes (Other)
  Sender: FDA-Public Use
  Company Number: FR-TEVA-2021-FR-1875809

PATIENT
  Age: 44 Year
  Sex: Female
  Weight: 46 kg

DRUGS (4)
  1. PREDNISONE. [Suspect]
     Active Substance: PREDNISONE
     Indication: HYPERSENSITIVITY
     Dosage: 20 MG
     Route: 048
     Dates: start: 20210105, end: 20210108
  2. OPTIMIZETTE 75 MICROGRAMMES, COMPRIME PELLICULE [Concomitant]
     Active Substance: DESOGESTREL
     Route: 048
  3. AERIUS [Concomitant]
     Route: 048
  4. GAVISCON [Concomitant]
     Active Substance: ALUMINUM HYDROXIDE\MAGNESIUM CARBONATE
     Route: 048

REACTIONS (1)
  - Suicidal ideation [Recovered/Resolved]

NARRATIVE: CASE EVENT DATE: 20210105
